FAERS Safety Report 18340522 (Version 2)
Quarter: 2022Q2

REPORT INFORMATION
  Report Type: Spontaneous
  Country: TW (occurrence: TW)
  Receive Date: 20201002
  Receipt Date: 20220407
  Transmission Date: 20220721
  Serious: Yes (Hospitalization, Other)
  Sender: FDA-Public Use
  Company Number: TW-009507513-2009TWN010661

PATIENT
  Age: 82 Year
  Sex: Female
  Weight: 44 kg

DRUGS (9)
  1. BRIDION [Suspect]
     Active Substance: SUGAMMADEX
     Dosage: 200MG (4.55 MG/KG)
     Dates: start: 20200824, end: 20200824
  2. THIAMYLAL [Concomitant]
     Active Substance: THIAMYLAL
     Dosage: 225 MILLIGRAM
  3. ROCURONIUM BROMIDE [Concomitant]
     Active Substance: ROCURONIUM BROMIDE
     Indication: Induction of anaesthesia
     Dosage: 50 MILLIGRAM
  4. ROCURONIUM BROMIDE [Concomitant]
     Active Substance: ROCURONIUM BROMIDE
     Dosage: 15-10MG/H
  5. LIDOCAINE [Concomitant]
     Active Substance: LIDOCAINE
     Indication: Induction of anaesthesia
     Dosage: 40 MILLIGRAM
  6. FENTANYL [Concomitant]
     Active Substance: FENTANYL
     Indication: Induction of anaesthesia
     Dosage: 75 MILLIGRAM
  7. GLYCOPYRROLATE [Concomitant]
     Active Substance: GLYCOPYRROLATE
     Indication: Induction of anaesthesia
     Dosage: 0.1 MILLIGRAM
  8. SEVOFLURANE [Concomitant]
     Active Substance: SEVOFLURANE
     Indication: Maintenance of anaesthesia
     Dosage: 0.5-0.9
  9. PROPOFOL [Concomitant]
     Active Substance: PROPOFOL
     Indication: Maintenance of anaesthesia
     Dosage: 20 ML/H

REACTIONS (5)
  - Hypoxia [Recovered/Resolved]
  - Bradycardia [Recovered/Resolved]
  - Hypotension [Recovered/Resolved]
  - Asthenia [Recovered/Resolved]
  - Incorrect dose administered [Unknown]

NARRATIVE: CASE EVENT DATE: 20200824
